FAERS Safety Report 4512856-2 (Version None)
Quarter: 2004Q4

REPORT INFORMATION
  Report Type: 
  Country: None (occurrence: None)
  Receive Date: 20041119
  Receipt Date: 20041119
  Transmission Date: 20050328
  Serious: Yes (Hospitalization)
  Sender: FDA-Public Use
  Company Number: None

PATIENT
  Sex: Male

DRUGS (2)
  1. EPIRUBICIN [Suspect]
  2. IFOSFAMIDE [Suspect]

REACTIONS (3)
  - FEBRILE NEUTROPENIA [None]
  - PAIN [None]
  - POSTOPERATIVE INFECTION [None]
